FAERS Safety Report 9071672 (Version 1)
Quarter: 2013Q1

REPORT INFORMATION
  Report Type: Spontaneous
  Country: US (occurrence: US)
  Receive Date: 20130206
  Receipt Date: 20130206
  Transmission Date: 20140127
  Serious: No
  Sender: FDA-Public Use
  Company Number: US-ALLERGAN-1213339US

PATIENT
  Age: 85 Year
  Sex: Female

DRUGS (3)
  1. RESTASIS? [Suspect]
     Indication: DRY EYE
     Dosage: 2 GTT, BID
     Route: 047
     Dates: start: 2010
  2. OASYS [Concomitant]
     Indication: DRY EYE
     Dosage: UNK, PRN
  3. THYROID MEDICATION [Concomitant]
     Indication: HYPOTHYROIDISM

REACTIONS (3)
  - Instillation site foreign body sensation [Recovering/Resolving]
  - Visual acuity reduced [Recovering/Resolving]
  - Eye pain [Recovering/Resolving]
